FAERS Safety Report 18899822 (Version 1)
Quarter: 2021Q1

REPORT INFORMATION
  Report Type: Spontaneous
  Country: DE (occurrence: DE)
  Receive Date: 20210216
  Receipt Date: 20210216
  Transmission Date: 20210420
  Serious: Yes (Other)
  Sender: FDA-Public Use
  Company Number: DE-PFIZER INC-2021118554

PATIENT
  Sex: Male

DRUGS (1)
  1. CYTOTEC [Suspect]
     Active Substance: MISOPROSTOL
     Indication: LABOUR INDUCTION
     Dosage: UNK
     Route: 064
     Dates: start: 2010

REACTIONS (3)
  - Cerebral haemorrhage foetal [Unknown]
  - Epilepsy [Unknown]
  - Foetal exposure during delivery [Unknown]

NARRATIVE: CASE EVENT DATE: 2010
